FAERS Safety Report 5189429-4 (Version None)
Quarter: 2006Q4

REPORT INFORMATION
  Report Type: 
  Country: None (occurrence: None)
  Receive Date: 20061221
  Receipt Date: 20061219
  Transmission Date: 20070319
  Serious: Yes (Hospitalization, Other)
  Sender: FDA-Public Use
  Company Number: US-GILEAD-2006-0010880

PATIENT
  Sex: Male

DRUGS (3)
  1. TRUVADA [Suspect]
  2. SUSTIVA [Concomitant]
  3. ZIAGEN [Concomitant]

REACTIONS (6)
  - DIARRHOEA [None]
  - HAEMODIALYSIS [None]
  - HYPERKALAEMIA [None]
  - NAUSEA [None]
  - RENAL FAILURE [None]
  - VOMITING [None]
